FAERS Safety Report 8421848-2 (Version None)
Quarter: 2012Q2

REPORT INFORMATION
  Report Type: 
  Country: None (occurrence: None)
  Receive Date: 20120601
  Receipt Date: 20120521
  Transmission Date: 20120825
  Serious: Yes (Death)
  Sender: FDA-Public Use
  Company Number: 2012MA006163

PATIENT
  Age: 68 Year
  Sex: Male

DRUGS (8)
  1. METFORMIN HYDROCHLORIDE [Suspect]
     Indication: DIABETES MELLITUS
     Dosage: 1 G; TID; PO
     Route: 048
     Dates: start: 20040101
  2. RAMIPRIL [Concomitant]
  3. SIMVASTATIN [Concomitant]
  4. ISOPTIN [Concomitant]
  5. DIGITOXIN TAB [Concomitant]
  6. METOPROLOL SUCCINATE [Concomitant]
  7. WARFARIN SODIUM [Concomitant]
  8. AMARYL [Concomitant]

REACTIONS (4)
  - MULTI-ORGAN FAILURE [None]
  - RENAL IMPAIRMENT [None]
  - HELICOBACTER GASTRITIS [None]
  - LACTIC ACIDOSIS [None]
